FAERS Safety Report 8895662 (Version 2)
Quarter: 2013Q1

REPORT INFORMATION
  Report Type: Spontaneous
  Country: DE (occurrence: DE)
  Receive Date: 20121107
  Receipt Date: 20130313
  Transmission Date: 20140127
  Serious: Yes (Life-Threatening, Hospitalization)
  Sender: FDA-Public Use
  Company Number: DE-B.I. PHARMACEUTICALS,INC./RIDGEFIELD-2012-DE-02640DE

PATIENT
  Age: 71 Year
  Sex: Female
  Weight: 90 kg

DRUGS (6)
  1. PRADAXA [Suspect]
     Indication: ATRIAL FIBRILLATION
     Dosage: 300 MG
     Route: 048
     Dates: start: 201209, end: 201210
  2. PRADAXA [Suspect]
     Indication: CEREBROVASCULAR ACCIDENT PROPHYLAXIS
  3. QUILONUM [Suspect]
     Indication: BIPOLAR I DISORDER
     Route: 048
  4. TRUXAL [Concomitant]
     Indication: SCHIZOAFFECTIVE DISORDER
     Dosage: 50 MG
     Route: 048
  5. BISOPROLOL [Concomitant]
     Indication: ARRHYTHMIA
     Dosage: 2.5 MG
     Route: 048
  6. RAMIPRIL [Concomitant]
     Indication: HYPERTENSION
     Dosage: 10 MG
     Route: 048

REACTIONS (4)
  - Bradycardia [Recovered/Resolved]
  - Antipsychotic drug level increased [Recovered/Resolved]
  - Drug interaction [Recovered/Resolved]
  - Cognitive disorder [Recovered/Resolved]
